FAERS Safety Report 20651015 (Version 29)
Quarter: 2025Q4

REPORT INFORMATION
  Report Type: Report from Study
  Country: US (occurrence: US)
  Receive Date: 20220329
  Receipt Date: 20251224
  Transmission Date: 20260118
  Serious: Yes (Other)
  Sender: TAKEDA
  Company Number: US-TAKEDA-2021TUS040973

PATIENT
  Age: 44 Year
  Sex: Male

DRUGS (3)
  1. RECOMBINATE [Suspect]
     Active Substance: ANTIHEMOPHILIC FACTOR, HUMAN RECOMBINANT
     Indication: Haemorrhage
     Dosage: 2400 INTERNATIONAL UNIT
  2. RECOMBINATE [Suspect]
     Active Substance: ANTIHEMOPHILIC FACTOR, HUMAN RECOMBINANT
     Dosage: 2400 INTERNATIONAL UNIT
  3. RECOMBINATE [Suspect]
     Active Substance: ANTIHEMOPHILIC FACTOR, HUMAN RECOMBINANT
     Dosage: 2400 INTERNATIONAL UNIT

REACTIONS (19)
  - Haemorrhoidal haemorrhage [Unknown]
  - Haemarthrosis [Not Recovered/Not Resolved]
  - Spontaneous haemorrhage [Recovered/Resolved]
  - Haemorrhage [Recovered/Resolved]
  - Musculoskeletal discomfort [Not Recovered/Not Resolved]
  - Tooth disorder [Unknown]
  - Swelling [Unknown]
  - Joint injury [Unknown]
  - Arthralgia [Not Recovered/Not Resolved]
  - Neck injury [Unknown]
  - Limb injury [Unknown]
  - Heart rate increased [Recovered/Resolved]
  - Arthropod bite [Unknown]
  - Injury [Unknown]
  - Sneezing [Unknown]
  - Muscle strain [Unknown]
  - Oropharyngeal pain [Unknown]
  - Ear infection [Unknown]
  - Palpitations [Unknown]

NARRATIVE: CASE EVENT DATE: 20210625
